FAERS Safety Report 7106227-2 (Version None)
Quarter: 2010Q4

REPORT INFORMATION
  Report Type: 
  Country: None (occurrence: None)
  Receive Date: 20101116
  Receipt Date: 20101105
  Transmission Date: 20110411
  Serious: Yes (Other)
  Sender: FDA-Public Use
  Company Number: US-JNJFOC-20100805945

PATIENT
  Sex: Male
  Weight: 81.19 kg

DRUGS (16)
  1. REMICADE [Suspect]
     Indication: RHEUMATOID ARTHRITIS
     Dosage: 300 OR 400 MG
     Route: 042
  2. REMICADE [Suspect]
     Dosage: 300 OR 400 MG
     Route: 042
  3. REMICADE [Suspect]
     Dosage: 300 OR 400 MG
     Route: 042
  4. ANTIHYPERTENSIVE [Concomitant]
  5. ASPIRIN [Concomitant]
  6. FOLATE [Concomitant]
     Dosage: 1 TAB
  7. PLAVIX [Concomitant]
  8. CRESTOR [Concomitant]
  9. TRICOR [Concomitant]
  10. DIOVAN [Concomitant]
  11. DIOVAN [Concomitant]
     Dosage: 160/25 MG
  12. TOPROL-XL [Concomitant]
  13. FELODIPINE [Concomitant]
  14. LISINOPRIL [Concomitant]
  15. DILTIAZEM [Concomitant]
  16. METFORMIN [Concomitant]

REACTIONS (3)
  - CEREBROVASCULAR DISORDER [None]
  - OSTEOPENIA [None]
  - RENAL FAILURE CHRONIC [None]
